FAERS Safety Report 7692461-X (Version None)
Quarter: 2011Q3

REPORT INFORMATION
  Report Type: 
  Country: None (occurrence: None)
  Receive Date: 20110818
  Receipt Date: 20110811
  Transmission Date: 20111222
  Serious: Yes (Other)
  Sender: FDA-Public Use
  Company Number: NL-CEPHALON-2011004235

PATIENT
  Sex: Male

DRUGS (1)
  1. MODAFANIL [Suspect]
     Indication: NARCOLEPSY
     Route: 048
     Dates: start: 20110521, end: 20110809

REACTIONS (6)
  - SPEECH DISORDER [None]
  - CHEST DISCOMFORT [None]
  - ABNORMAL BEHAVIOUR [None]
  - PARAESTHESIA [None]
  - LOSS OF CONSCIOUSNESS [None]
  - CHEST PAIN [None]
